FAERS Safety Report 25797911 (Version 1)
Quarter: 2025Q3

REPORT INFORMATION
  Report Type: Spontaneous
  Country: US (occurrence: None)
  Receive Date: 20250912
  Receipt Date: 20250912
  Transmission Date: 20251020
  Serious: No
  Sender: INCYTE
  Company Number: US-INCYTE CORPORATION-2025IN009690

PATIENT
  Age: 78 Year

DRUGS (1)
  1. JAKAFI [Suspect]
     Active Substance: RUXOLITINIB
     Indication: Product used for unknown indication
     Dosage: 10 MILLIGRAM, BID

REACTIONS (6)
  - Abdominal pain upper [Unknown]
  - Gastritis [Unknown]
  - Feeling hot [Unknown]
  - Hypophagia [Unknown]
  - Poor quality sleep [Unknown]
  - Headache [Unknown]
